FAERS Safety Report 6829866-2 (Version None)
Quarter: 2010Q3

REPORT INFORMATION
  Report Type: 
  Country: None (occurrence: None)
  Receive Date: 20100710
  Receipt Date: 20100629
  Transmission Date: 20110219
  Serious: No
  Sender: FDA-Public Use
  Company Number: US-JNJFOC-20100700384

PATIENT
  Sex: Female
  Weight: 99.34 kg

DRUGS (8)
  1. DURAGESIC-100 [Suspect]
     Indication: HEADACHE
     Dosage: NDC: 50458-0092-05
     Route: 062
  2. NEXIUM [Concomitant]
     Indication: GASTROOESOPHAGEAL REFLUX DISEASE
     Route: 048
  3. HYDROCHLOROTHIAZIDE [Concomitant]
     Indication: DIURETIC THERAPY
     Route: 048
  4. COZAAR [Concomitant]
     Indication: HYPERTENSION
     Route: 048
  5. PRENATAL MULTIPLE VITAMIN [Concomitant]
     Indication: NAIL GROWTH ABNORMAL
     Dosage: ONE OCCASIONALLY
     Route: 048
  6. TIZANIDINE HCL [Concomitant]
     Indication: MUSCLE RELAXANT THERAPY
     Dosage: 4 MG DAILY IN MORNING/ORAL Q AM/2 HS 4MG
     Route: 048
  7. ALPRAZOLAM [Concomitant]
     Indication: PANIC ATTACK
     Route: 048
  8. TIZANIDINE HCL [Concomitant]
     Route: 048

REACTIONS (4)
  - ABNORMAL LOSS OF WEIGHT [None]
  - DRUG ADMINISTERED AT INAPPROPRIATE SITE [None]
  - DRUG DOSE OMISSION [None]
  - WRONG TECHNIQUE IN DRUG USAGE PROCESS [None]
